FAERS Safety Report 12009060 (Version 1)
Quarter: 2016Q1

REPORT INFORMATION
  Report Type: Spontaneous
  Country: US (occurrence: None)
  Receive Date: 20160203
  Receipt Date: 20160203
  Transmission Date: 20160526
  Serious: Yes (Hospitalization)
  Sender: FDA-Public Use
  Company Number: None

PATIENT
  Age: 62 Year
  Sex: Male
  Weight: 74.07 kg

DRUGS (12)
  1. ALEMTUZUMAB [Suspect]
     Active Substance: ALEMTUZUMAB
     Indication: MULTIPLE SCLEROSIS
     Route: 042
     Dates: start: 20150415, end: 20150417
  2. CLONAZEPAM. [Concomitant]
     Active Substance: CLONAZEPAM
  3. BUSPIRONE [Concomitant]
     Active Substance: BUSPIRONE HYDROCHLORIDE
  4. PREDNISONE. [Concomitant]
     Active Substance: PREDNISONE
  5. METOPROLOL TARTRATE. [Concomitant]
     Active Substance: METOPROLOL TARTRATE
  6. ATORVASTATIN [Concomitant]
     Active Substance: ATORVASTATIN
  7. FLAGYL [Concomitant]
     Active Substance: METRONIDAZOLE\METRONIDAZOLE HYDROCHLORIDE
  8. SOLU-MEDROL [Suspect]
     Active Substance: METHYLPREDNISOLONE SODIUM SUCCINATE
     Route: 042
     Dates: start: 20150415, end: 20150417
  9. VANCOMYCIN [Concomitant]
     Active Substance: VANCOMYCIN
  10. TRAMADOL. [Concomitant]
     Active Substance: TRAMADOL
  11. FLECAINIDE [Concomitant]
     Active Substance: FLECAINIDE
  12. GABAPENTIN. [Concomitant]
     Active Substance: GABAPENTIN

REACTIONS (12)
  - Anaemia [None]
  - Tachycardia [None]
  - Haematuria [None]
  - Atrial fibrillation [None]
  - Night sweats [None]
  - Rash [None]
  - Chills [None]
  - Dyspnoea [None]
  - Haemoglobin decreased [None]
  - Asthenia [None]
  - Pyrexia [None]
  - Haemolytic anaemia [None]

NARRATIVE: CASE EVENT DATE: 20150819
